FAERS Safety Report 8479090-5 (Version None)
Quarter: 2012Q2

REPORT INFORMATION
  Report Type: 
  Country: None (occurrence: None)
  Receive Date: 20120629
  Receipt Date: 20120620
  Transmission Date: 20120825
  Serious: Yes (Hospitalization)
  Sender: FDA-Public Use
  Company Number: FR-BRISTOL-MYERS SQUIBB COMPANY-16705386

PATIENT
  Age: 61 Year
  Sex: Female

DRUGS (3)
  1. ABILIFY [Suspect]
     Route: 048
     Dates: start: 20120323, end: 20120415
  2. TEGRETOL [Suspect]
  3. TERCIAN [Suspect]

REACTIONS (2)
  - HEPATITIS [None]
  - LYMPHOMA [None]
